FAERS Safety Report 8849049 (Version 1)
Quarter: 2012Q4

REPORT INFORMATION
  Report Type: Spontaneous
  Country: BR (occurrence: None)
  Receive Date: 20121016
  Receipt Date: 20121016
  Transmission Date: 20130627
  Serious: Yes (Hospitalization, Other)
  Sender: FDA-Public Use
  Company Number: DSA_59994_2012

PATIENT
  Age: 56 Year
  Sex: Female
  Weight: 72.5 kg

DRUGS (4)
  1. RENITEC [Suspect]
     Indication: HYPERTENSION
     Route: 048
  2. VICTRELIS 200 MG [Suspect]
     Indication: HEPATITIS C
     Route: 048
     Dates: start: 20120613, end: 201209
  3. PURAN T4 [Concomitant]
  4. AMLODIPINE [Concomitant]

REACTIONS (14)
  - Drug prescribing error [None]
  - Ophthalmoplegia [None]
  - Eye pain [None]
  - Oral disorder [None]
  - Thyroid disorder [None]
  - Diplopia [None]
  - Ageusia [None]
  - Dysgeusia [None]
  - Headache [None]
  - Weight increased [None]
  - Asthenia [None]
  - Somnolence [None]
  - Pyrexia [None]
  - Feeling abnormal [None]
